FAERS Safety Report 24164428 (Version 1)
Quarter: 2024Q3

REPORT INFORMATION
  Report Type: Report from Study
  Country: GB (occurrence: GB)
  Receive Date: 20240801
  Receipt Date: 20240801
  Transmission Date: 20241016
  Serious: Yes (Other)
  Sender: SANDOZ
  Company Number: GB-SANDOZ-SDZ2024GB068586

PATIENT
  Sex: Female

DRUGS (1)
  1. HYRIMOZ [Suspect]
     Active Substance: ADALIMUMAB-ADAZ
     Indication: Ankylosing spondylitis
     Dosage: 40 MG (40MG/0.4ML), SOLUTION FOR INJECTION PRE-FILLED PENS
     Route: 058

REACTIONS (2)
  - Surgery [Unknown]
  - Impaired healing [Not Recovered/Not Resolved]
